FAERS Safety Report 13720825 (Version 5)
Quarter: 2017Q3

REPORT INFORMATION
  Report Type: Spontaneous
  Country: AT (occurrence: AT)
  Receive Date: 20170706
  Receipt Date: 20170721
  Transmission Date: 20171127
  Serious: Yes (Hospitalization, Other)
  Sender: FDA-Public Use
  Company Number: AT-ASTRAZENECA-2017SE67535

PATIENT
  Age: 61 Year
  Sex: Male

DRUGS (60)
  1. SEROQUEL [Suspect]
     Active Substance: QUETIAPINE FUMARATE
     Dosage: 300 MG, DOSE AT UAE START UNKNOWN
     Route: 048
     Dates: start: 20160519, end: 20160602
  2. SEROQUEL [Suspect]
     Active Substance: QUETIAPINE FUMARATE
     Dosage: 100.0MG UNKNOWN
     Route: 048
     Dates: start: 20160610, end: 20160627
  3. TRILEPTAL [Suspect]
     Active Substance: OXCARBAZEPINE
     Dosage: 300.0MG UNKNOWN
     Route: 065
     Dates: start: 20160518, end: 20160518
  4. TRILEPTAL [Suspect]
     Active Substance: OXCARBAZEPINE
     Dosage: 450.0MG UNKNOWN
     Route: 065
     Dates: start: 20160519, end: 20160519
  5. TRILEPTAL [Suspect]
     Active Substance: OXCARBAZEPINE
     Dosage: 600.0MG UNKNOWN
     Route: 065
     Dates: start: 20160520, end: 20160523
  6. SERTRALINE [Suspect]
     Active Substance: SERTRALINE HYDROCHLORIDE
     Dosage: 50 MG, DOSE AT UAE START UNKNOWN
     Route: 065
     Dates: start: 20160526, end: 20160529
  7. TEMESTA [Concomitant]
     Active Substance: LORAZEPAM
     Dosage: 1-2 MG UNKNOWN
     Dates: start: 20160505, end: 20160515
  8. TEMESTA [Concomitant]
     Active Substance: LORAZEPAM
     Dosage: TAPER/EX UNKNOWN
     Dates: start: 20160516, end: 20160522
  9. OLEOVIT [Concomitant]
     Dosage: 28.0GTT UNKNOWN
     Dates: start: 20160509
  10. SEROQUEL [Suspect]
     Active Substance: QUETIAPINE FUMARATE
     Dosage: 400.0MG UNKNOWN
     Route: 048
     Dates: start: 20160603, end: 20160608
  11. SERTRALINE [Suspect]
     Active Substance: SERTRALINE HYDROCHLORIDE
     Dosage: 25.0MG UNKNOWN
     Route: 065
     Dates: start: 20160524, end: 20160525
  12. SERTRALINE [Suspect]
     Active Substance: SERTRALINE HYDROCHLORIDE
     Dosage: 100.0MG UNKNOWN
     Route: 065
     Dates: start: 20160530, end: 20160607
  13. RISPERDAL [Concomitant]
     Active Substance: RISPERIDONE
     Dosage: UNKNOWN
     Dates: start: 20160620, end: 20160626
  14. RISPERDAL [Concomitant]
     Active Substance: RISPERIDONE
     Dosage: UNKNOWN
     Dates: start: 20160628, end: 20160628
  15. LYRICA [Concomitant]
     Active Substance: PREGABALIN
     Dosage: 300.0MG UNKNOWN
     Dates: start: 20160610
  16. CIPRALEX [Concomitant]
     Active Substance: ESCITALOPRAM OXALATE
     Dosage: 5.0MG UNKNOWN
     Dates: start: 20160629, end: 20160630
  17. CIPRALEX [Concomitant]
     Active Substance: ESCITALOPRAM OXALATE
     Dosage: 10.0MG UNKNOWN
     Dates: start: 20160701
  18. SEROQUEL [Suspect]
     Active Substance: QUETIAPINE FUMARATE
     Dosage: 100.0MG UNKNOWN
     Route: 048
     Dates: start: 20160628, end: 20160628
  19. SERTRALINE [Suspect]
     Active Substance: SERTRALINE HYDROCHLORIDE
     Dosage: 200.0MG UNKNOWN
     Route: 065
     Dates: start: 20160609, end: 20160627
  20. MIRTABENE [Concomitant]
     Active Substance: MIRTAZAPINE
     Dosage: 30.0MG UNKNOWN
     Dates: start: 201604, end: 20160512
  21. RISPERDAL [Concomitant]
     Active Substance: RISPERIDONE
     Dosage: 2.0MG UNKNOWN
     Dates: start: 20160610, end: 20160619
  22. NEURO-MULTIVIT [Concomitant]
     Dosage: ONE TABLET
     Dates: start: 20160505, end: 20160518
  23. MOVICOL [Concomitant]
     Active Substance: POLYETHYLENE GLYCOL 3350\POTASSIUM CHLORIDE\SODIUM BICARBONATE\SODIUM CHLORIDE
     Dosage: ON DEMAND
     Dates: start: 20160506, end: 20160513
  24. SEROQUEL [Suspect]
     Active Substance: QUETIAPINE FUMARATE
     Dosage: 200.0MG UNKNOWN
     Route: 048
     Dates: start: 20160510, end: 20160516
  25. SERTRALINE [Suspect]
     Active Substance: SERTRALINE HYDROCHLORIDE
     Dosage: 150.0MG UNKNOWN
     Route: 065
     Dates: start: 20160608, end: 20160608
  26. TRITTICO [Suspect]
     Active Substance: TRAZODONE HYDROCHLORIDE
     Dosage: ON DEMAND UPTO 450 MG STARTED BEFORE ADMISSION
     Route: 065
     Dates: end: 20160504
  27. MIRTABENE [Concomitant]
     Active Substance: MIRTAZAPINE
     Dosage: 15.0MG UNKNOWN
     Dates: start: 20160513, end: 20160518
  28. LYRICA [Concomitant]
     Active Substance: PREGABALIN
     Dosage: 125.0MG UNKNOWN
     Dates: start: 20160529, end: 20160601
  29. INDERAL [Concomitant]
     Active Substance: PROPRANOLOL HYDROCHLORIDE
     Dosage: 10.0MG UNKNOWN
     Dates: start: 20160508, end: 20160508
  30. METOHEXAL [Concomitant]
     Active Substance: METOPROLOL SUCCINATE
     Dosage: 47.5MG STARTED BEFORE ADMISSION.
  31. ANTIBIOPHILUS [Concomitant]
     Dates: start: 20160611, end: 20160621
  32. SEROQUEL [Suspect]
     Active Substance: QUETIAPINE FUMARATE
     Dosage: 100.0MG UNKNOWN
     Route: 048
     Dates: start: 20160629
  33. TRILEPTAL [Suspect]
     Active Substance: OXCARBAZEPINE
     Dosage: 300.0MG UNKNOWN
     Route: 065
     Dates: start: 20160525, end: 20160525
  34. HOVA [Concomitant]
     Active Substance: HERBALS\HOPS\VALERIAN
     Dosage: ON DEMAND, FOUR DRG
     Dates: start: 20160520, end: 20160520
  35. LAEVOLAC [Concomitant]
     Active Substance: LACTULOSE
     Dosage: ON DEMAND
     Dates: start: 20160506, end: 20160513
  36. IMODIUM [Concomitant]
     Active Substance: LOPERAMIDE HYDROCHLORIDE
     Dosage: 2.0MG UNKNOWN
     Dates: start: 20160615, end: 20160616
  37. SEROQUEL [Suspect]
     Active Substance: QUETIAPINE FUMARATE
     Dosage: 225.0MG UNKNOWN
     Route: 048
     Dates: start: 20160517, end: 20160518
  38. MEPRIL (ENALAPRIL MALEATE) [Suspect]
     Active Substance: ENALAPRIL MALEATE
     Dosage: 20.0MG UNKNOWN
     Route: 065
     Dates: start: 20160526
  39. PANTOLOC [Suspect]
     Active Substance: PANTOPRAZOLE SODIUM
     Dosage: 20.0MG UNKNOWN
     Route: 065
     Dates: start: 20160505, end: 20160510
  40. LYRICA [Concomitant]
     Active Substance: PREGABALIN
     Dosage: 150.0MG UNKNOWN
     Dates: start: 20160602, end: 20160606
  41. LYRICA [Concomitant]
     Active Substance: PREGABALIN
     Dosage: 225.0MG UNKNOWN
     Dates: start: 20160607, end: 20160609
  42. INDERAL [Concomitant]
     Active Substance: PROPRANOLOL HYDROCHLORIDE
     Dosage: 10.0MG UNKNOWN
     Dates: start: 20160506, end: 20160506
  43. INDERAL [Concomitant]
     Active Substance: PROPRANOLOL HYDROCHLORIDE
     Dosage: 10.0MG UNKNOWN
     Dates: start: 20160513, end: 20160513
  44. ATARAX [Concomitant]
     Active Substance: HYDROXYZINE HYDROCHLORIDE
     Dosage: ON DEMAND, 25 MG
     Dates: start: 20160511, end: 20160512
  45. SEROQUEL [Suspect]
     Active Substance: QUETIAPINE FUMARATE
     Dosage: 100.0MG UNKNOWN
     Route: 048
     Dates: start: 20160506, end: 20160509
  46. SEROQUEL [Suspect]
     Active Substance: QUETIAPINE FUMARATE
     Dosage: 200.0MG UNKNOWN
     Route: 048
     Dates: start: 20160609, end: 20160609
  47. TRILEPTAL [Suspect]
     Active Substance: OXCARBAZEPINE
     Dosage: 900.0MG UNKNOWN
     Route: 065
     Dates: start: 20160524, end: 20160524
  48. TRITTICO [Suspect]
     Active Substance: TRAZODONE HYDROCHLORIDE
     Dosage: 50 MG, DOSE AT UAE START UNKNOWN
     Route: 065
     Dates: start: 20160526, end: 20160526
  49. RISPERDAL [Concomitant]
     Active Substance: RISPERIDONE
     Dosage: 1.0MG UNKNOWN
     Dates: start: 20160629, end: 20160629
  50. TEMESTA [Concomitant]
     Active Substance: LORAZEPAM
     Dosage: 0.5MG UNKNOWN
     Dates: start: 20160504, end: 20160504
  51. INDERAL [Concomitant]
     Active Substance: PROPRANOLOL HYDROCHLORIDE
     Dosage: 20.0MG UNKNOWN
     Dates: start: 20160512, end: 20160512
  52. EFECTIN [Suspect]
     Active Substance: VENLAFAXINE HYDROCHLORIDE
     Dosage: 75-300 MG STARTED BEFORE ADMISSION.
     Route: 065
     Dates: end: 20160503
  53. MEPRIL (ENALAPRIL MALEATE) [Suspect]
     Active Substance: ENALAPRIL MALEATE
     Dosage: STARTED BEFORE ADMISSION,
     Route: 065
  54. PANTOLOC [Suspect]
     Active Substance: PANTOPRAZOLE SODIUM
     Dosage: 40 MG, DOSE AT UAE START UNKNOWN
     Route: 065
     Dates: start: 20160511, end: 20160703
  55. TRITTICO [Suspect]
     Active Substance: TRAZODONE HYDROCHLORIDE
     Dosage: 150.0MG UNKNOWN
     Route: 065
     Dates: start: 20160504, end: 20160505
  56. RISPERDAL [Concomitant]
     Active Substance: RISPERIDONE
     Dosage: 1.0MG UNKNOWN
     Dates: start: 20160609, end: 20160609
  57. RISPERDAL [Concomitant]
     Active Substance: RISPERIDONE
     Dosage: 2.0MG UNKNOWN
     Dates: start: 20160627, end: 20160627
  58. RISPERDAL [Concomitant]
     Active Substance: RISPERIDONE
     Dosage: 2.0MG UNKNOWN
     Dates: start: 20160630
  59. LYRICA [Concomitant]
     Active Substance: PREGABALIN
     Dosage: 50 MG, DOSE AT UAE START
     Dates: start: 20160525, end: 20160527
  60. LYRICA [Concomitant]
     Active Substance: PREGABALIN
     Dosage: 100.0MG UNKNOWN
     Dates: start: 20160528, end: 20160528

REACTIONS (5)
  - Helicobacter gastritis [Unknown]
  - Duodenitis [Unknown]
  - Hyponatraemia [Recovered/Resolved]
  - Illness anxiety disorder [Unknown]
  - Colitis microscopic [Recovered/Resolved]

NARRATIVE: CASE EVENT DATE: 20160526
